FAERS Safety Report 6419581-1 (Version None)
Quarter: 2009Q4

REPORT INFORMATION
  Report Type: 
  Country: None (occurrence: None)
  Receive Date: 20091027
  Receipt Date: 20091015
  Transmission Date: 20100525
  Serious: Yes (Other)
  Sender: FDA-Public Use
  Company Number: 8053532

PATIENT
  Age: 37 Year
  Sex: Male

DRUGS (3)
  1. KEPPRA [Suspect]
  2. OMEPRAZOLE [Concomitant]
  3. VITAMIN TAB [Concomitant]

REACTIONS (5)
  - BLOOD BILIRUBIN INCREASED [None]
  - CONVULSION [None]
  - HEPATIC ENCEPHALOPATHY [None]
  - SEPSIS [None]
  - WHITE BLOOD CELL COUNT DECREASED [None]
